FAERS Safety Report 6247033-0 (Version None)
Quarter: 2009Q2

REPORT INFORMATION
  Report Type: 
  Country: None (occurrence: None)
  Receive Date: 20090624
  Receipt Date: 20090624
  Transmission Date: 20091009
  Serious: Yes (Life-Threatening)
  Sender: FDA-Public Use
  Company Number: None

PATIENT
  Age: 59 Year
  Sex: Male
  Weight: 109 kg

DRUGS (5)
  1. MORPHINE SULFATE [Suspect]
     Indication: PAIN
     Dosage: PO, SR + IR
     Route: 048
     Dates: start: 20090520, end: 20090521
  2. GABAPENTIN [Concomitant]
  3. INSULIN [Concomitant]
  4. LISINOPRIL [Concomitant]
  5. LOSARTAN POTASSIUM [Concomitant]

REACTIONS (3)
  - BLOOD CREATININE INCREASED [None]
  - DEPRESSED LEVEL OF CONSCIOUSNESS [None]
  - MENTAL STATUS CHANGES [None]
